FAERS Safety Report 17847980 (Version 1)
Quarter: 2020Q2

REPORT INFORMATION
  Report Type: Spontaneous
  Country: US (occurrence: US)
  Receive Date: 20200601
  Receipt Date: 20200601
  Transmission Date: 20200714
  Serious: No
  Sender: FDA-Public Use
  Company Number: US-BIOMARINAP-US-2020-130036

PATIENT
  Sex: Male

DRUGS (1)
  1. KUVAN [Suspect]
     Active Substance: SAPROPTERIN DIHYDROCHLORIDE
     Indication: PHENYLKETONURIA
     Dosage: UNK
     Route: 065
     Dates: start: 20141109

REACTIONS (3)
  - Anosmia [Unknown]
  - Cough [Unknown]
  - Ageusia [Unknown]
